FAERS Safety Report 8088848-6 (Version None)
Quarter: 2012Q1

REPORT INFORMATION
  Report Type: 
  Country: None (occurrence: None)
  Receive Date: 20120128
  Receipt Date: 20110407
  Transmission Date: 20120608
  Serious: No
  Sender: FDA-Public Use
  Company Number: US-ABBOTT-11P-163-0717266-00

PATIENT
  Sex: Female
  Weight: 99.88 kg

DRUGS (4)
  1. PLAQUENIL [Concomitant]
     Indication: RHEUMATOID ARTHRITIS
     Dosage: OFF AND ON
     Dates: start: 20080101
  2. HUMIRA [Suspect]
     Indication: RHEUMATOID ARTHRITIS
     Dates: start: 20101101, end: 20110101
  3. LISINOPRIL [Concomitant]
     Indication: HYPERTENSION
  4. ULTRACET [Concomitant]
     Indication: PAIN

REACTIONS (1)
  - RHEUMATOID ARTHRITIS [None]
